FAERS Safety Report 13640796 (Version 2)
Quarter: 2017Q3

REPORT INFORMATION
  Report Type: Spontaneous
  Country: JP (occurrence: JP)
  Receive Date: 20170612
  Receipt Date: 20170714
  Transmission Date: 20171127
  Serious: Yes (Hospitalization, Other)
  Sender: FDA-Public Use
  Company Number: JP-ROCHE-1900711

PATIENT
  Age: 31 Year
  Sex: Female
  Weight: 55 kg

DRUGS (4)
  1. XELODA [Suspect]
     Active Substance: CAPECITABINE
     Indication: BREAST CANCER
     Dosage: EVERYDAY ADMINISTRATION (NO REST)?AFTER BREAKFAST AND DINNER.
     Route: 048
     Dates: start: 20170203, end: 20170217
  2. TAMOXIFEN [Concomitant]
     Active Substance: TAMOXIFEN
     Indication: BREAST CANCER
     Route: 048
     Dates: start: 20170113
  3. XELODA [Suspect]
     Active Substance: CAPECITABINE
     Indication: BREAST CANCER
     Dosage: 1 WEEK ADMINISTRATION FOLLOWED BY 2 WEEK REST. AFTER BREAKFAST AND DINNER.?MOST RECENT DOSE ON: 19/J
     Route: 048
     Dates: start: 20170113
  4. LEUPLIN [Concomitant]
     Active Substance: LEUPROLIDE ACETATE
     Indication: BREAST CANCER
     Dosage: SINGLE DOSE ADMINISTRATION
     Route: 042
     Dates: start: 20170203, end: 20170203

REACTIONS (4)
  - Cytomegalovirus enterocolitis [Recovered/Resolved]
  - C-reactive protein increased [Recovered/Resolved]
  - Lip erosion [Not Recovered/Not Resolved]
  - Enterocolitis [Recovered/Resolved]

NARRATIVE: CASE EVENT DATE: 20170213
